APPROVED DRUG PRODUCT: BROMOCRIPTINE MESYLATE
Active Ingredient: BROMOCRIPTINE MESYLATE
Strength: EQ 5MG BASE
Dosage Form/Route: CAPSULE;ORAL
Application: A077226 | Product #001 | TE Code: AB
Applicant: MYLAN PHARMACEUTICALS INC
Approved: Apr 4, 2005 | RLD: No | RS: Yes | Type: RX